FAERS Safety Report 4799128-6 (Version None)
Quarter: 2005Q4

REPORT INFORMATION
  Report Type: 
  Country: None (occurrence: None)
  Receive Date: 20051014
  Receipt Date: 20050407
  Transmission Date: 20060501
  Serious: Yes (Hospitalization, Other)
  Sender: FDA-Public Use
  Company Number: US-MERCK-0504USA00998

PATIENT
  Sex: Male

DRUGS (3)
  1. VIOXX [Suspect]
     Route: 048
     Dates: start: 20000301, end: 20000401
  2. VIOXX [Suspect]
     Route: 048
     Dates: start: 20000401, end: 20041019
  3. DURICEF [Concomitant]
     Route: 048

REACTIONS (11)
  - ARTHRALGIA [None]
  - AXILLARY MASS [None]
  - BACK INJURY [None]
  - CARDIAC DISORDER [None]
  - CONSTIPATION [None]
  - GROIN PAIN [None]
  - MYOCARDIAL INFARCTION [None]
  - NECK INJURY [None]
  - SKIN LACERATION [None]
  - THROMBOPHLEBITIS SUPERFICIAL [None]
  - TINEA INFECTION [None]
